FAERS Safety Report 8237805-5 (Version None)
Quarter: 2012Q1

REPORT INFORMATION
  Report Type: 
  Country: None (occurrence: None)
  Receive Date: 20120327
  Receipt Date: 20111208
  Transmission Date: 20120608
  Serious: Yes (Death)
  Sender: FDA-Public Use
  Company Number: US-CELGENEUS-163-21880-11083365

PATIENT
  Sex: Male

DRUGS (6)
  1. PRESSORS [Concomitant]
     Indication: HYPOTENSION
     Route: 041
     Dates: start: 20110101
  2. REVLIMID [Suspect]
     Dosage: 15 MILLIGRAM
     Route: 048
     Dates: start: 20100701
  3. REVLIMID [Suspect]
     Indication: MULTIPLE MYELOMA
     Dosage: 25 MILLIGRAM
     Route: 048
     Dates: start: 20100601
  4. REVLIMID [Suspect]
     Dosage: 15 MILLIGRAM
     Route: 048
     Dates: start: 20100701
  5. REVLIMID [Suspect]
     Dosage: 15 MILLIGRAM
     Route: 048
     Dates: start: 20100801, end: 20110601
  6. REVLIMID [Suspect]
     Route: 048
     Dates: start: 20110701

REACTIONS (3)
  - PNEUMONIA [None]
  - MULTIPLE MYELOMA [None]
  - SEPTIC SHOCK [None]
